FAERS Safety Report 8876282 (Version 1)
Quarter: 2012Q4

REPORT INFORMATION
  Report Type: 
  Country: US (occurrence: US)
  Receive Date: 20121023
  Receipt Date: 20121023
  Transmission Date: 20130627
  Serious: Yes (Hospitalization)
  Sender: FDA-Public Use
  Company Number: US-FRI-1000039369

PATIENT
  Age: 81 Year
  Sex: Female

DRUGS (11)
  1. DALIRESP [Suspect]
     Indication: CHRONIC OBSTRUCTIVE PULMONARY DISEASE
     Dosage: 500MCG
     Route: 048
     Dates: start: 20120924, end: 20120926
  2. OMEPRAZOLE [Concomitant]
  3. CALCIUM [Concomitant]
  4. VITAMIN B 12 [Concomitant]
  5. ADVAIR [Concomitant]
  6. VITAMIN D [Concomitant]
  7. LIPITOR [Concomitant]
  8. DILTIAZEM [Concomitant]
  9. PREDNISONE [Concomitant]
  10. FUROSEMIDE [Concomitant]
  11. IRON [Concomitant]

REACTIONS (1)
  - Chest pain [Recovered/Resolved]
